FAERS Safety Report 5514528-4 (Version None)
Quarter: 2007Q4

REPORT INFORMATION
  Report Type: 
  Country: None (occurrence: None)
  Receive Date: 20071113
  Receipt Date: 20071107
  Transmission Date: 20080405
  Serious: Yes (Other)
  Sender: FDA-Public Use
  Company Number: PHEH2007US14511

PATIENT
  Age: 84 Year
  Sex: Female
  Weight: 74.829 kg

DRUGS (2)
  1. DIOVAN HCT [Suspect]
     Indication: HYPERTENSION
     Dosage: 320MG VAL/12.5MG HCT, UNK
  2. LEVOTHYROXINE SODIUM [Concomitant]
     Dosage: UNK, UNK

REACTIONS (3)
  - FATIGUE [None]
  - MORTON'S NEUROMA [None]
  - SURGERY [None]
